FAERS Safety Report 18513200 (Version 3)
Quarter: 2021Q2

REPORT INFORMATION
  Report Type: Report from Study
  Country: CA (occurrence: CA)
  Receive Date: 20201117
  Receipt Date: 20210602
  Transmission Date: 20210717
  Serious: Yes (Other)
  Sender: FDA-Public Use
  Company Number: CA-SHIRE-CA202018435AA

PATIENT
  Age: 55 Year
  Sex: Male
  Weight: 108 kg

DRUGS (3)
  1. VELAGLUCERASE ALFA [Suspect]
     Active Substance: VELAGLUCERASE ALFA
     Indication: GAUCHER^S DISEASE
     Dosage: 11 DOSAGE FORM (FULL VIALS), 2X A WEEK
     Route: 065
     Dates: start: 20130509, end: 20200601
  2. VELAGLUCERASE ALFA [Suspect]
     Active Substance: VELAGLUCERASE ALFA
     Dosage: 11 DOSAGE FORM, Q2WEEKS
     Route: 065
     Dates: start: 20130509
  3. VELAGLUCERASE ALFA [Suspect]
     Active Substance: VELAGLUCERASE ALFA
     Dosage: 11 DOSAGE FORM, Q2WEEKS
     Route: 065
     Dates: start: 20130509

REACTIONS (4)
  - Blood pressure increased [Unknown]
  - Amyotrophic lateral sclerosis [Not Recovered/Not Resolved]
  - Fatigue [Unknown]
  - Bone pain [Unknown]

NARRATIVE: CASE EVENT DATE: 2018
